FAERS Safety Report 17663829 (Version 1)
Quarter: 2020Q2

REPORT INFORMATION
  Report Type: Spontaneous
  Country: US (occurrence: US)
  Receive Date: 20200414
  Receipt Date: 20200414
  Transmission Date: 20200713
  Serious: Yes (Other)
  Sender: FDA-Public Use
  Company Number: US-AMGEN-USASP2020059345

PATIENT
  Age: 59 Year
  Sex: Female

DRUGS (1)
  1. ENBREL [Suspect]
     Active Substance: ETANERCEPT
     Indication: CEREBRAL DISORDER
     Dosage: UNK
     Route: 065

REACTIONS (3)
  - Injection site swelling [Recovered/Resolved]
  - Lung neoplasm malignant [Recovered/Resolved]
  - Product use in unapproved indication [Unknown]
